FAERS Safety Report 25730677 (Version 3)
Quarter: 2025Q4

REPORT INFORMATION
  Report Type: Spontaneous
  Country: JP (occurrence: JP)
  Receive Date: 20250827
  Receipt Date: 20251022
  Transmission Date: 20260117
  Serious: Yes (Other)
  Sender: ROCHE
  Company Number: JP-CHUGAI-2025027073

PATIENT
  Age: 69 Year
  Sex: Male

DRUGS (3)
  1. PIASKY [Suspect]
     Active Substance: CROVALIMAB-AKKZ
     Indication: Paroxysmal nocturnal haemoglobinuria
     Route: 058
     Dates: start: 20250321, end: 2025
  2. PIASKY [Suspect]
     Active Substance: CROVALIMAB-AKKZ
     Route: 058
     Dates: start: 20250502, end: 202505
  3. PIASKY [Suspect]
     Active Substance: CROVALIMAB-AKKZ
     Route: 058
     Dates: start: 20250516

REACTIONS (2)
  - Breakthrough haemolysis [Not Recovered/Not Resolved]
  - Pyrexia [Unknown]

NARRATIVE: CASE EVENT DATE: 20250613
